FAERS Safety Report 7610686-6 (Version None)
Quarter: 2011Q3

REPORT INFORMATION
  Report Type: 
  Country: None (occurrence: None)
  Receive Date: 20110715
  Receipt Date: 20110712
  Transmission Date: 20111222
  Serious: Yes (Other)
  Sender: FDA-Public Use
  Company Number: CA-PFIZER INC-2011157265

PATIENT
  Age: 36 Year
  Sex: Male

DRUGS (2)
  1. ZIPRASIDONE HYDROCHLORIDE [Suspect]
     Dosage: 40 MG, UNK
     Dates: start: 20110101, end: 20110101
  2. ZIPRASIDONE HYDROCHLORIDE [Suspect]
     Dosage: 80 MG, UNK
     Dates: start: 20110101, end: 20110101

REACTIONS (5)
  - JOINT LOCK [None]
  - GAIT DISTURBANCE [None]
  - ANGER [None]
  - PAIN IN EXTREMITY [None]
  - PERSONALITY CHANGE [None]
